FAERS Safety Report 4826331-9 (Version None)
Quarter: 2005Q4

REPORT INFORMATION
  Report Type: 
  Country: None (occurrence: None)
  Receive Date: 20051111
  Receipt Date: 20051019
  Transmission Date: 20060501
  Serious: Yes (Other)
  Sender: FDA-Public Use
  Company Number: JP-ROCHE-422248

PATIENT
  Age: 54 Year
  Sex: Male

DRUGS (4)
  1. MYCOPHENOLATE MOFETIL [Suspect]
     Route: 065
  2. TACROLIMUS [Concomitant]
  3. STEROID [Concomitant]
  4. BASILIXIMAB [Concomitant]

REACTIONS (3)
  - ANOREXIA [None]
  - PANCYTOPENIA [None]
  - WEIGHT DECREASED [None]
